FAERS Safety Report 12059803 (Version 1)
Quarter: 2016Q1

REPORT INFORMATION
  Report Type: Spontaneous
  Country: FR (occurrence: FR)
  Receive Date: 20160210
  Receipt Date: 20160210
  Transmission Date: 20160526
  Serious: Yes (Hospitalization)
  Sender: FDA-Public Use
  Company Number: FR-PFIZER INC-2016061862

PATIENT
  Age: 13 Year
  Sex: Female

DRUGS (6)
  1. PLITICAN [Suspect]
     Active Substance: ALIZAPRIDE HYDROCHLORIDE
     Dosage: 5 MG/KG, 1X/DAY
     Route: 042
     Dates: start: 20160115, end: 20160116
  2. ADRIBLASTINE [Suspect]
     Active Substance: DOXORUBICIN
     Indication: EWING^S SARCOMA
     Dosage: 32 MG, 1X/DAY
     Route: 042
     Dates: start: 20160113, end: 20160115
  3. IFOSFAMIDE EG [Suspect]
     Active Substance: IFOSFAMIDE
     Indication: EWING^S SARCOMA
     Dosage: 4800 MG, 1X/DAY
     Route: 042
     Dates: start: 20160113, end: 20160115
  4. EMEND [Suspect]
     Active Substance: APREPITANT
     Dosage: 80 MG, 1X/DAY
     Route: 048
     Dates: start: 20160115, end: 20160116
  5. VINCRISTINE TEVA [Suspect]
     Active Substance: VINCRISTINE
     Indication: EWING^S SARCOMA
     Dosage: 2 MG, SINGLE
     Route: 042
     Dates: start: 20160113, end: 20160113
  6. ETOPOSIDE TEVA [Suspect]
     Active Substance: ETOPOSIDE
     Indication: EWING^S SARCOMA
     Dosage: 192 MG, 1X/DAY
     Route: 042
     Dates: start: 20160113, end: 20160114

REACTIONS (3)
  - Diplopia [Recovered/Resolved]
  - Hyperreflexia [Recovered/Resolved]
  - Cerebellar syndrome [Recovered/Resolved]

NARRATIVE: CASE EVENT DATE: 20160115
